FAERS Safety Report 8217746-X (Version None)
Quarter: 2012Q1

REPORT INFORMATION
  Report Type: 
  Country: None (occurrence: None)
  Receive Date: 20120319
  Receipt Date: 20120309
  Transmission Date: 20120608
  Serious: Yes (Hospitalization)
  Sender: FDA-Public Use
  Company Number: HR-JNJFOC-20120306170

PATIENT
  Sex: Female
  Weight: 65 kg

DRUGS (5)
  1. STELARA [Suspect]
     Route: 058
     Dates: start: 20111101, end: 20111101
  2. STELARA [Suspect]
     Route: 058
     Dates: start: 20110408, end: 20110408
  3. STELARA [Suspect]
     Route: 058
     Dates: start: 20120217
  4. STELARA [Suspect]
     Indication: PSORIASIS
     Route: 058
     Dates: start: 20110729, end: 20110729
  5. STELARA [Suspect]
     Route: 058
     Dates: start: 20110506, end: 20110506

REACTIONS (5)
  - HYPERGLYCAEMIA [None]
  - MALAISE [None]
  - ASTHENIA [None]
  - NAUSEA [None]
  - VOMITING [None]
